FAERS Safety Report 16739432 (Version 19)
Quarter: 2022Q3

REPORT INFORMATION
  Report Type: Spontaneous
  Country: GB (occurrence: GB)
  Receive Date: 20190826
  Receipt Date: 20220926
  Transmission Date: 20221026
  Serious: Yes (Death, Congenital Anomaly, Other)
  Sender: FDA-Public Use
  Company Number: None

PATIENT
  Age: 0 Year
  Sex: Male
  Weight: 2.85 kg

DRUGS (57)
  1. ABACAVIR [Suspect]
     Active Substance: ABACAVIR
     Indication: Product used for unknown indication
     Dosage: UNK TABLET (UNCOATED)
     Route: 064
  2. ABACAVIR [Suspect]
     Active Substance: ABACAVIR
     Dosage: UNK TABLET (UNCOATED
     Route: 064
  3. ABACAVIR [Suspect]
     Active Substance: ABACAVIR
     Dosage: UNK TABLET (UNCOATED
     Route: 064
  4. ABACAVIR [Suspect]
     Active Substance: ABACAVIR
     Dosage: UNK TABLET (UNCOATED
     Route: 064
  5. ABACAVIR [Suspect]
     Active Substance: ABACAVIR
     Dosage: UNK TABLET (UNCOATED
     Route: 064
  6. ABACAVIR [Suspect]
     Active Substance: ABACAVIR
     Dosage: UNK TABLET (UNCOATED
     Route: 064
  7. ABACAVIR [Suspect]
     Active Substance: ABACAVIR
     Dosage: UNK
     Route: 064
  8. ABACAVIR [Suspect]
     Active Substance: ABACAVIR
     Dosage: UNK
     Route: 064
  9. LAMIVUDINE [Suspect]
     Active Substance: LAMIVUDINE
     Indication: Product used for unknown indication
     Dosage: UNK (POWDER FOR INFUSION)
     Route: 064
  10. LAMIVUDINE [Suspect]
     Active Substance: LAMIVUDINE
     Dosage: UNK (POWDER FOR INFUSION)
     Route: 064
  11. LAMIVUDINE [Suspect]
     Active Substance: LAMIVUDINE
     Dosage: UNK TABLET (UNCOATED
     Route: 064
  12. LAMIVUDINE [Suspect]
     Active Substance: LAMIVUDINE
     Dosage: UNK TABLET (UNCOATED
     Route: 064
  13. LAMIVUDINE [Suspect]
     Active Substance: LAMIVUDINE
     Dosage: UNK TABLET (UNCOATED
     Route: 064
  14. LAMIVUDINE [Suspect]
     Active Substance: LAMIVUDINE
     Dosage: UNK
     Route: 064
  15. CHOLECALCIFEROL [Suspect]
     Active Substance: CHOLECALCIFEROL
     Indication: Product used for unknown indication
     Dosage: UNK (UNCOATED)
     Route: 064
  16. CHOLECALCIFEROL [Suspect]
     Active Substance: CHOLECALCIFEROL
     Dosage: UNK (UNCOATED)
     Route: 064
  17. CHOLECALCIFEROL [Suspect]
     Active Substance: CHOLECALCIFEROL
     Dosage: UNK (UNCOATED)
     Route: 064
  18. CHOLECALCIFEROL [Suspect]
     Active Substance: CHOLECALCIFEROL
     Dosage: UNK (UNCOATED)
     Route: 064
  19. CHOLECALCIFEROL [Suspect]
     Active Substance: CHOLECALCIFEROL
     Dosage: UNK (UNCOATED)
     Route: 064
  20. CHOLECALCIFEROL [Suspect]
     Active Substance: CHOLECALCIFEROL
     Dosage: UNK
     Route: 064
  21. CHOLECALCIFEROL [Suspect]
     Active Substance: CHOLECALCIFEROL
     Dosage: UNK
     Route: 064
  22. NEVIRAPINE [Suspect]
     Active Substance: NEVIRAPINE
     Indication: Product used for unknown indication
     Dosage: UNK (UNCOATED)
     Route: 064
  23. NEVIRAPINE [Suspect]
     Active Substance: NEVIRAPINE
     Dosage: UNK FOR VIRAMUNE (UNCOATED)
     Route: 064
  24. NEVIRAPINE [Suspect]
     Active Substance: NEVIRAPINE
     Dosage: UNK, FOR VIRAMUNE (UNCOATED)
     Route: 064
  25. NEVIRAPINE [Suspect]
     Active Substance: NEVIRAPINE
     Dosage: UNK (UNCOATED)
     Route: 064
  26. NEVIRAPINE [Suspect]
     Active Substance: NEVIRAPINE
     Dosage: UNK (UNCOATED)
     Route: 064
  27. NEVIRAPINE [Suspect]
     Active Substance: NEVIRAPINE
     Dosage: UNK (UNCOATED)
     Route: 064
  28. NEVIRAPINE [Suspect]
     Active Substance: NEVIRAPINE
     Dosage: UNK (UNCOATED)
     Route: 064
  29. ERGOCALCIFEROL [Suspect]
     Active Substance: ERGOCALCIFEROL
     Indication: Product used for unknown indication
     Dosage: UNK (UNCOATED)
     Route: 064
  30. ERGOCALCIFEROL [Suspect]
     Active Substance: ERGOCALCIFEROL
     Dosage: UNK (UNCOATED)
     Route: 064
  31. ERGOCALCIFEROL [Suspect]
     Active Substance: ERGOCALCIFEROL
     Dosage: UNK (UNCOATED)
     Route: 064
  32. ERGOCALCIFEROL [Suspect]
     Active Substance: ERGOCALCIFEROL
     Dosage: UNK (UNCOATED)
     Route: 064
  33. ERGOCALCIFEROL [Suspect]
     Active Substance: ERGOCALCIFEROL
     Dosage: UNK
     Route: 064
  34. ERGOCALCIFEROL [Suspect]
     Active Substance: ERGOCALCIFEROL
     Dosage: UNK
     Route: 064
  35. ABACAVIR SULFATE\LAMIVUDINE [Suspect]
     Active Substance: ABACAVIR SULFATE\LAMIVUDINE
     Indication: Product used for unknown indication
     Dosage: UNK
     Route: 064
  36. ABACAVIR SULFATE\LAMIVUDINE [Suspect]
     Active Substance: ABACAVIR SULFATE\LAMIVUDINE
     Dosage: UNK
     Route: 064
  37. ABACAVIR SULFATE\LAMIVUDINE [Suspect]
     Active Substance: ABACAVIR SULFATE\LAMIVUDINE
     Dosage: UNK
     Route: 064
  38. ABACAVIR SULFATE\LAMIVUDINE [Suspect]
     Active Substance: ABACAVIR SULFATE\LAMIVUDINE
     Dosage: UNK
     Route: 064
  39. ABACAVIR SULFATE\LAMIVUDINE [Suspect]
     Active Substance: ABACAVIR SULFATE\LAMIVUDINE
     Dosage: UNK
     Route: 064
  40. ABACAVIR SULFATE\LAMIVUDINE [Suspect]
     Active Substance: ABACAVIR SULFATE\LAMIVUDINE
     Dosage: UNK
     Route: 064
  41. NIFEDIPINE [Suspect]
     Active Substance: NIFEDIPINE
     Indication: Product used for unknown indication
     Dosage: UNK (UNCOATED,)
     Route: 064
  42. NIFEDIPINE [Suspect]
     Active Substance: NIFEDIPINE
     Dosage: UNK (UNCOATED,)
     Route: 064
  43. NIFEDIPINE [Suspect]
     Active Substance: NIFEDIPINE
     Dosage: UNK (UNCOATED,)
     Route: 064
  44. NIFEDIPINE [Suspect]
     Active Substance: NIFEDIPINE
     Dosage: UNK
     Route: 064
  45. LABETALOL [Suspect]
     Active Substance: LABETALOL\LABETALOL HYDROCHLORIDE
     Indication: Product used for unknown indication
     Dosage: UNK (UNCOATED)
     Route: 064
  46. LABETALOL [Suspect]
     Active Substance: LABETALOL\LABETALOL HYDROCHLORIDE
     Dosage: UNK (UNCOATED)
     Route: 064
  47. LABETALOL [Suspect]
     Active Substance: LABETALOL\LABETALOL HYDROCHLORIDE
     Dosage: UNK (UNCOATED)
     Route: 064
  48. LABETALOL [Suspect]
     Active Substance: LABETALOL\LABETALOL HYDROCHLORIDE
     Dosage: UNK (UNCOATED)
     Route: 064
  49. LABETALOL [Suspect]
     Active Substance: LABETALOL\LABETALOL HYDROCHLORIDE
     Dosage: UNK (UNCOATED)
     Route: 064
  50. LABETALOL [Suspect]
     Active Substance: LABETALOL\LABETALOL HYDROCHLORIDE
     Dosage: UNK (UNCOATED)
     Route: 064
  51. LABETALOL [Suspect]
     Active Substance: LABETALOL\LABETALOL HYDROCHLORIDE
     Dosage: UNK (UNCOATED)
     Route: 064
  52. ASPIRIN [Suspect]
     Active Substance: ASPIRIN
     Indication: Product used for unknown indication
     Dosage: UNK (UNCOATED,)
     Route: 064
  53. ASPIRIN [Suspect]
     Active Substance: ASPIRIN
     Dosage: UNK (UNCOATED,)
     Route: 064
  54. ASPIRIN [Suspect]
     Active Substance: ASPIRIN
     Dosage: UNK(UNCOATED,)
     Route: 064
  55. ASPIRIN [Suspect]
     Active Substance: ASPIRIN
     Dosage: UNK(UNCOATED,)
     Route: 064
  56. ASPIRIN [Suspect]
     Active Substance: ASPIRIN
     Dosage: UNK
     Route: 064
  57. COMBIVIR [Suspect]
     Active Substance: LAMIVUDINE\ZIDOVUDINE
     Indication: Product used for unknown indication
     Dosage: UNK (UNCOATED)
     Route: 064

REACTIONS (14)
  - Death [Fatal]
  - Polydactyly [Fatal]
  - Atrioventricular septal defect [Fatal]
  - Gene mutation [Fatal]
  - Trisomy 21 [Fatal]
  - Pulmonary hypertension [Fatal]
  - Macrocephaly [Fatal]
  - Attention deficit hyperactivity disorder [Fatal]
  - Ataxia [Fatal]
  - Neurodevelopmental disorder [Fatal]
  - Speech disorder developmental [Fatal]
  - Congenital central nervous system anomaly [Fatal]
  - Dandy-Walker syndrome [Fatal]
  - Foetal exposure during pregnancy [Fatal]

NARRATIVE: CASE EVENT DATE: 20110305
